FAERS Safety Report 12226689 (Version 2)
Quarter: 2016Q2

REPORT INFORMATION
  Report Type: Report from Study
  Country: US (occurrence: US)
  Receive Date: 20160331
  Receipt Date: 20160607
  Transmission Date: 20160815
  Serious: No
  Sender: FDA-Public Use
  Company Number: PHHY2016US012774

PATIENT
  Age: 55 Year
  Sex: Female

DRUGS (1)
  1. GILENYA [Suspect]
     Active Substance: FINGOLIMOD HYDROCHLORIDE
     Indication: MULTIPLE SCLEROSIS
     Dosage: UNK
     Route: 048

REACTIONS (4)
  - Lymphocyte count decreased [Unknown]
  - Arthralgia [Not Recovered/Not Resolved]
  - Eosinophil count increased [Unknown]
  - Rash [Unknown]

NARRATIVE: CASE EVENT DATE: 20150604
